FAERS Safety Report 20709062 (Version 1)
Quarter: 2022Q2

REPORT INFORMATION
  Report Type: Spontaneous
  Country: US (occurrence: None)
  Receive Date: 20220413
  Receipt Date: 20220413
  Transmission Date: 20220720
  Serious: Yes (Hospitalization)
  Sender: FDA-Public Use
  Company Number: None

PATIENT
  Sex: Female

DRUGS (1)
  1. PLEGRIDY [Suspect]
     Active Substance: PEGINTERFERON BETA-1A
     Indication: Multiple sclerosis
     Dosage: FREQUENCY : EVERY OTHER WEEK;?
     Route: 048
     Dates: start: 20180201

REACTIONS (4)
  - Fall [None]
  - Immobile [None]
  - Cardiac failure congestive [None]
  - Hypertension [None]
